FAERS Safety Report 4339469-X (Version None)
Quarter: 2004Q2

REPORT INFORMATION
  Report Type: 
  Country: None (occurrence: None)
  Receive Date: 20040412
  Receipt Date: 20040329
  Transmission Date: 20050107
  Serious: Yes (Hospitalization)
  Sender: FDA-Public Use
  Company Number: 2004205770JP

PATIENT
  Age: 75 Year
  Sex: Female

DRUGS (18)
  1. CABASER (CABERGOLINE) TABLET, 1-4MG [Suspect]
     Indication: PARKINSON'S DISEASE
     Dosage: SEE IMAGE
     Route: 048
     Dates: start: 20030604, end: 20030702
  2. CABASER (CABERGOLINE) TABLET, 1-4MG [Suspect]
     Indication: PARKINSON'S DISEASE
     Dosage: SEE IMAGE
     Route: 048
     Dates: start: 20030703, end: 20030703
  3. CABASER (CABERGOLINE) TABLET, 1-4MG [Suspect]
     Indication: PARKINSON'S DISEASE
     Dosage: SEE IMAGE
     Route: 048
     Dates: start: 20030704, end: 20030712
  4. PERMAX [Suspect]
     Dosage: SEE IMAGE
     Route: 048
     Dates: start: 20030808
  5. PERMAX [Suspect]
     Dosage: SEE IMAGE
     Route: 048
     Dates: start: 20030813
  6. PERMAX [Suspect]
     Dosage: SEE IMAGE
     Route: 048
     Dates: start: 20030821
  7. LEBOCAR (LEVODOPA, CARBIDOPA, CARBIDOPA, LEVODOPA, CARBIDOPA, LEVODOPA [Suspect]
     Dosage: SEE IMAGE
     Route: 048
     Dates: start: 19960501
  8. LEBOCAR (LEVODOPA, CARBIDOPA, CARBIDOPA, LEVODOPA, CARBIDOPA, LEVODOPA [Suspect]
     Dosage: SEE IMAGE
     Route: 048
     Dates: start: 19991201
  9. LEBOCAR (LEVODOPA, CARBIDOPA, CARBIDOPA, LEVODOPA, CARBIDOPA, LEVODOPA [Suspect]
     Dosage: SEE IMAGE
     Route: 048
     Dates: start: 20030724
  10. SELEGILINE HYDROCHLORIDE (SELEGILINE HYDROCHLORIDE) [Suspect]
     Dosage: SEE IMAGE
     Dates: start: 20030618
  11. SELEGILINE HYDROCHLORIDE (SELEGILINE HYDROCHLORIDE) [Suspect]
     Dosage: SEE IMAGE
     Dates: start: 20030627
  12. TOFRANIL [Suspect]
     Dosage: 10 MG, ORAL
     Route: 048
     Dates: end: 20030728
  13. PAROXETINE HCL [Suspect]
     Dosage: 10 MG,
     Dates: start: 20030708, end: 20030728
  14. BROMOCRIPTINA DOROM (BROMOCRIPTINE MESILATE, BROMOCRIPTINE MESILATE, B [Suspect]
     Dosage: SEE IMAGE
     Route: 048
     Dates: start: 20030712, end: 20030821
  15. BROMOCRIPTINA DOROM (BROMOCRIPTINE MESILATE, BROMOCRIPTINE MESILATE, B [Suspect]
     Dosage: SEE IMAGE
     Route: 048
     Dates: start: 20030816, end: 20030821
  16. BROMOCRIPTINA DOROM (BROMOCRIPTINE MESILATE, BROMOCRIPTINE MESILATE, B [Suspect]
     Dosage: SEE IMAGE
     Route: 048
     Dates: start: 20030708
  17. SEROQUEL [Suspect]
     Dosage: SEE IMAGE
     Route: 048
     Dates: start: 20030728
  18. TRIHEXYPHENIDYL HCL [Concomitant]

REACTIONS (5)
  - ANOREXIA [None]
  - DELIRIUM [None]
  - HALLUCINATION [None]
  - INSOMNIA [None]
  - NOCTURIA [None]
